FAERS Safety Report 9661644 (Version 2)
Quarter: 2013Q4

REPORT INFORMATION
  Report Type: Spontaneous
  Country: US (occurrence: US)
  Receive Date: 20131031
  Receipt Date: 20131031
  Transmission Date: 20140711
  Serious: No
  Sender: FDA-Public Use
  Company Number: US-PURDUE-USA-2010-0053162

PATIENT
  Sex: Male

DRUGS (1)
  1. OXYCONTIN (NDA 22-272) [Suspect]
     Indication: PRODUCT USED FOR UNKNOWN INDICATION
     Dosage: 80 MG, Q6- 8H
     Route: 048
     Dates: start: 20100920

REACTIONS (12)
  - Accidental overdose [Recovered/Resolved]
  - Drug withdrawal syndrome [Recovered/Resolved]
  - Negative thoughts [Unknown]
  - Pain [Recovered/Resolved]
  - Flatulence [Unknown]
  - Malaise [Unknown]
  - Mental impairment [Unknown]
  - Unevaluable event [Unknown]
  - Memory impairment [Unknown]
  - Decreased appetite [Unknown]
  - Incorrect dose administered [Recovered/Resolved]
  - Product quality issue [Recovered/Resolved]
